FAERS Safety Report 6687808-7 (Version None)
Quarter: 2010Q2

REPORT INFORMATION
  Report Type: 
  Country: None (occurrence: None)
  Receive Date: 20100420
  Receipt Date: 20100412
  Transmission Date: 20101027
  Serious: Yes (Other)
  Sender: FDA-Public Use
  Company Number: DE-WYE-G05937910

PATIENT

DRUGS (1)
  1. TREVILOR RETARD [Suspect]
     Dosage: 150 MG, FREQUENCY UNKNOWN
     Route: 048

REACTIONS (2)
  - DRUG WITHDRAWAL SYNDROME [None]
  - HYPERTENSIVE CRISIS [None]
